FAERS Safety Report 4884463-3 (Version None)
Quarter: 2006Q1

REPORT INFORMATION
  Report Type: 
  Country: None (occurrence: None)
  Receive Date: 20060119
  Receipt Date: 20051226
  Transmission Date: 20060701
  Serious: Yes (Other)
  Sender: FDA-Public Use
  Company Number: JP-BOEHRINGER INGELHEIM PHARMACEUTICALS, INC.-2005-BP-21889YA

PATIENT
  Sex: Male

DRUGS (5)
  1. HARNAL D (TAMSULOSIN HYDROCHLORIDE) [Suspect]
     Indication: BENIGN PROSTATIC HYPERPLASIA
     Route: 048
     Dates: start: 20051123, end: 20051212
  2. HARNAL D (TAMSULOSIN HYDROCHLORIDE) [Suspect]
     Route: 048
     Dates: start: 20051115, end: 20051122
  3. LEVOFLOXACIN [Concomitant]
     Indication: CYSTITIS
     Route: 048
     Dates: start: 20051115, end: 20051122
  4. TEPRENONE [Concomitant]
     Indication: CYSTITIS
     Route: 048
     Dates: start: 20051115, end: 20051122
  5. GATIFLOXACIN [Concomitant]
     Indication: CYSTITIS
     Route: 048

REACTIONS (4)
  - DRUG ERUPTION [None]
  - OEDEMA GENITAL [None]
  - PRURITUS [None]
  - URTICARIA [None]
